FAERS Safety Report 15056424 (Version 1)
Quarter: 2018Q2

REPORT INFORMATION
  Report Type: Report from Study
  Country: DE (occurrence: DE)
  Receive Date: 20180622
  Receipt Date: 20180622
  Transmission Date: 20180711
  Serious: No
  Sender: FDA-Public Use
  Company Number: DE-BIOVERATIV-2018BV000393

PATIENT
  Sex: Male

DRUGS (4)
  1. ELOCTA [Suspect]
     Active Substance: EFMOROCTOCOG ALFA
     Indication: FACTOR VIII DEFICIENCY
  2. HEMLIBRA [Concomitant]
     Active Substance: EMICIZUMAB-KXWH
     Indication: FACTOR VIII DEFICIENCY
     Route: 058
  3. ELOCTA [Suspect]
     Active Substance: EFMOROCTOCOG ALFA
     Route: 058
  4. ELOCTA [Suspect]
     Active Substance: EFMOROCTOCOG ALFA
     Indication: IMMUNE TOLERANCE INDUCTION
     Dosage: VIA CATHETER
     Route: 050
     Dates: start: 2017

REACTIONS (5)
  - Injection site rash [Unknown]
  - Off label use [Unknown]
  - Energy increased [Unknown]
  - Language disorder [Unknown]
  - Injection site erythema [Unknown]
